FAERS Safety Report 4539704-9 (Version None)
Quarter: 2004Q4

REPORT INFORMATION
  Report Type: 
  Country: None (occurrence: None)
  Receive Date: 20041228
  Receipt Date: 20041222
  Transmission Date: 20050328
  Serious: Yes (Death)
  Sender: FDA-Public Use
  Company Number: US-JNJFOC-20040806976

PATIENT
  Sex: Female

DRUGS (4)
  1. RISPERDAL [Suspect]
     Route: 049
     Dates: start: 20020101, end: 20040731
  2. RISPERDAL [Suspect]
     Indication: DEMENTIA
     Route: 049
     Dates: start: 20020101, end: 20040731
  3. REMINYL [Suspect]
     Route: 049
  4. ANTIHYPERTENSIVE [Concomitant]
     Indication: HYPERTENSION
     Route: 065

REACTIONS (1)
  - DEMENTIA ALZHEIMER'S TYPE [None]
